FAERS Safety Report 15565094 (Version 1)
Quarter: 2018Q4

REPORT INFORMATION
  Report Type: Spontaneous
  Country: US (occurrence: US)
  Receive Date: 20181024
  Receipt Date: 20181024
  Transmission Date: 20190205
  Serious: Yes (Death)
  Sender: FDA-Public Use
  Company Number: None

PATIENT
  Age: 70 Year
  Sex: Male
  Weight: 102.5 kg

DRUGS (3)
  1. ECULIZUMAB [Suspect]
     Active Substance: ECULIZUMAB
     Indication: POST INFECTION GLOMERULONEPHRITIS
     Route: 042
     Dates: start: 20170127, end: 20170210
  2. ECULIZUMAB [Suspect]
     Active Substance: ECULIZUMAB
     Indication: PAROXYSMAL NOCTURNAL HAEMOGLOBINURIA
     Route: 042
     Dates: start: 20170127, end: 20170210
  3. ECULIZUMAB [Suspect]
     Active Substance: ECULIZUMAB

REACTIONS (9)
  - Nausea [None]
  - Hypotension [None]
  - Pulmonary congestion [None]
  - Haemoglobin decreased [None]
  - Acute myocardial infarction [None]
  - Ventricular tachycardia [None]
  - Cough [None]
  - Herpes zoster [None]
  - Chills [None]

NARRATIVE: CASE EVENT DATE: 20170209
